FAERS Safety Report 4369801-2 (Version None)
Quarter: 2004Q2

REPORT INFORMATION
  Report Type: 
  Country: None (occurrence: None)
  Receive Date: 20040525
  Receipt Date: 20040512
  Transmission Date: 20050107
  Serious: Yes (Other)
  Sender: FDA-Public Use
  Company Number: SE-JNJFOC-20040502685

PATIENT
  Age: 31 Year
  Sex: Male

DRUGS (4)
  1. INFLIXIMAB (INFLIXIMAB, RECOMBINANT) [Suspect]
     Indication: CROHN'S DISEASE
     Dosage: 5 MG/KG, INTRAVENOUS
     Route: 042
  2. AZATHIOPRINE [Concomitant]
  3. ..... [Concomitant]
  4. .... [Concomitant]

REACTIONS (2)
  - DRUG EFFECT DECREASED [None]
  - IMPAIRED HEALING [None]
